FAERS Safety Report 13037511 (Version 1)
Quarter: 2016Q4

REPORT INFORMATION
  Report Type: Spontaneous
  Country: DE (occurrence: DE)
  Receive Date: 20161217
  Receipt Date: 20161217
  Transmission Date: 20170207
  Serious: Yes (Other)
  Sender: FDA-Public Use
  Company Number: DE-009507513-1610DEU005343

PATIENT
  Age: 59 Year
  Sex: Male
  Weight: 97 kg

DRUGS (4)
  1. FLUVASTATIN SODIUM. [Suspect]
     Active Substance: FLUVASTATIN SODIUM
     Dosage: 20 MG, UNK
     Route: 048
     Dates: start: 201608
  2. FLUVASTATIN SODIUM. [Suspect]
     Active Substance: FLUVASTATIN SODIUM
     Indication: BLOOD CHOLESTEROL INCREASED
     Dosage: 20 MG, QD
     Route: 048
     Dates: start: 201508, end: 201508
  3. EZETROL [Suspect]
     Active Substance: EZETIMIBE
     Dosage: 10 MG, UNK
     Route: 048
     Dates: end: 201606
  4. EZETROL [Suspect]
     Active Substance: EZETIMIBE
     Indication: BLOOD CHOLESTEROL INCREASED
     Dosage: 10 MG, UNK
     Route: 048
     Dates: start: 201508, end: 201511

REACTIONS (6)
  - Movement disorder [Recovered/Resolved]
  - Myalgia [Recovered/Resolved]
  - Pain [Recovered/Resolved]
  - Pain [Unknown]
  - Myalgia [Unknown]
  - Movement disorder [Unknown]

NARRATIVE: CASE EVENT DATE: 201508
